FAERS Safety Report 15515371 (Version 4)
Quarter: 2018Q4

REPORT INFORMATION
  Report Type: Report from Study
  Country: CZ (occurrence: CZ)
  Receive Date: 20181017
  Receipt Date: 20181116
  Transmission Date: 20190205
  Serious: Yes (Death)
  Sender: FDA-Public Use
  Company Number: CZ-AMGEN-CZECT2018144275

PATIENT
  Age: 66 Year
  Sex: Male
  Weight: 81 kg

DRUGS (8)
  1. CARDILAN [Concomitant]
     Indication: SUPPLEMENTATION THERAPY
     Dosage: 1 DF, DAILY, ONE TABLET DAILY IN THE MORNING
     Dates: start: 20111114
  2. DICLOFENAC AL [Concomitant]
     Indication: RHEUMATOID ARTHRITIS
     Dosage: 1 DF, DAILY, ONE TABLET ONE DAILY IN THE MORNING
     Dates: start: 20141215
  3. CLOPIDOGREL [Concomitant]
     Active Substance: CLOPIDOGREL BISULFATE
     Indication: PERIPHERAL ISCHAEMIA
     Dosage: 1 DF, DAILY ONE TABLET DAILY IN THE MORNING
     Dates: start: 20171229, end: 20180710
  4. ACIDUM FOLICUM [Concomitant]
     Active Substance: FOLIC ACID
     Indication: RHEUMATOID ARTHRITIS
     Dosage: 2 DF, WEEKLY (ONE TABLET MORNING AND ONE TABLET EVENING ONCE A WEEK)
     Dates: start: 20111114, end: 20180710
  5. ETANERCEPT [Suspect]
     Active Substance: ETANERCEPT
     Indication: RHEUMATOID ARTHRITIS
     Dosage: UNK, WEEKLY
     Route: 065
     Dates: start: 20150929, end: 20180710
  6. METHOTREXATE. [Concomitant]
     Active Substance: METHOTREXATE
     Indication: RHEUMATOID ARTHRITIS
     Dosage: UNK, WEEKLY
     Dates: start: 20080225, end: 20180710
  7. MEDROL [Concomitant]
     Active Substance: METHYLPREDNISOLONE
     Indication: RHEUMATOID ARTHRITIS
     Dosage: 1 DF, DAILY, ONE TABLET ONE DAILY ON THE MORNING
     Dates: start: 20111114
  8. CALTRATE WITH VITAMIN D [Concomitant]
     Active Substance: CALCIUM CARBONATE\CHOLECALCIFEROL
     Indication: SUPPLEMENTATION THERAPY
     Dosage: 1 DF, 1X/DAY, ONE TABLET ONE DAILY ON THE MORNING
     Dates: start: 20121217

REACTIONS (1)
  - Acute myocardial infarction [Fatal]

NARRATIVE: CASE EVENT DATE: 20180710
